FAERS Safety Report 23431210 (Version 2)
Quarter: 2024Q4

REPORT INFORMATION
  Report Type: Spontaneous
  Country: US (occurrence: US)
  Receive Date: 20240123
  Receipt Date: 20241007
  Transmission Date: 20250115
  Serious: Yes (Other)
  Sender: VIIV
  Company Number: US-VIIV HEALTHCARE LIMITED-US2024AMR007910

PATIENT
  Age: 38 Year
  Sex: Male

DRUGS (1)
  1. DOVATO [Suspect]
     Active Substance: DOLUTEGRAVIR SODIUM\LAMIVUDINE
     Indication: HIV infection
     Dosage: UNK
     Route: 048
     Dates: start: 20190401

REACTIONS (3)
  - Keratomileusis [Unknown]
  - Influenza [Not Recovered/Not Resolved]
  - Vision blurred [Not Recovered/Not Resolved]

NARRATIVE: CASE EVENT DATE: 20240701
